FAERS Safety Report 8484829 (Version 4)
Quarter: 2013Q1

REPORT INFORMATION
  Report Type: Report from Study
  Country: US (occurrence: US)
  Receive Date: 20120330
  Receipt Date: 20130129
  Transmission Date: 20140127
  Serious: Yes (Death, Hospitalization, Other)
  Sender: FDA-Public Use
  Company Number: US-ROCHE-1044332

PATIENT
  Sex: Female

DRUGS (1)
  1. VEMURAFENIB [Suspect]
     Indication: PRODUCT USED FOR UNKNOWN INDICATION
     Route: 065

REACTIONS (10)
  - Disease progression [Fatal]
  - Liver disorder [Unknown]
  - Blood bilirubin decreased [Unknown]
  - Uveitis [Unknown]
  - Blood bilirubin increased [Recovered/Resolved]
  - Hepatotoxicity [Unknown]
  - Jaundice [Recovered/Resolved]
  - Angiopathy [Unknown]
  - Ill-defined disorder [Unknown]
  - Musculoskeletal disorder [Not Recovered/Not Resolved]
